FAERS Safety Report 7582429-6 (Version None)
Quarter: 2011Q2

REPORT INFORMATION
  Report Type: 
  Country: None (occurrence: None)
  Receive Date: 20110630
  Receipt Date: 20110620
  Transmission Date: 20111010
  Serious: Yes (Other)
  Sender: FDA-Public Use
  Company Number: US-JNJFOC-20110509121

PATIENT
  Sex: Male
  Weight: 55.3 kg

DRUGS (7)
  1. TYLENOL-500 [Concomitant]
     Indication: PREMEDICATION
     Dates: start: 20110412
  2. PEPCID AC [Concomitant]
     Indication: PREMEDICATION
     Dates: start: 20110412
  3. LOVENOX [Concomitant]
     Dates: start: 20110412, end: 20110513
  4. REMICADE [Suspect]
     Indication: CROHN'S DISEASE
     Route: 042
     Dates: start: 20110412
  5. IRON DEXTRAN [Concomitant]
     Indication: IRON DEFICIENCY ANAEMIA
     Dates: start: 20110412
  6. ZYRTEC [Concomitant]
     Dates: start: 20110412
  7. METHYLPREDNISOLONE [Concomitant]
     Dates: start: 20110413

REACTIONS (3)
  - COLECTOMY [None]
  - PANCREATITIS [None]
  - PYREXIA [None]
